FAERS Safety Report 7595959-8 (Version None)
Quarter: 2011Q3

REPORT INFORMATION
  Report Type: 
  Country: None (occurrence: None)
  Receive Date: 20110707
  Receipt Date: 20110624
  Transmission Date: 20111222
  Serious: Yes (Other)
  Sender: FDA-Public Use
  Company Number: PHHY2011NL15903

PATIENT
  Sex: Female

DRUGS (3)
  1. ZOMETA [Suspect]
     Dosage: 4 MG, EVERY 28 DAYS
     Dates: start: 20110126
  2. ZOMETA [Suspect]
     Indication: BREAST CANCER METASTATIC
     Dosage: 4 MG, EVERY 28 DAYS
     Dates: start: 20101202
  3. ZOMETA [Suspect]
     Dosage: 4 MG, EVERY 28 DAYS
     Dates: end: 20110614

REACTIONS (4)
  - VIRAL TEST POSITIVE [None]
  - MALAISE [None]
  - MYOSITIS [None]
  - PNEUMONIA [None]
